FAERS Safety Report 21007217 (Version 10)
Quarter: 2023Q1

REPORT INFORMATION
  Report Type: Report from Study
  Country: US (occurrence: US)
  Receive Date: 20220625
  Receipt Date: 20230306
  Transmission Date: 20230417
  Serious: No
  Sender: FDA-Public Use
  Company Number: US-NOVARTISTESTPH-NVSC2022US145282

PATIENT
  Sex: Female

DRUGS (1)
  1. KESIMPTA [Suspect]
     Active Substance: OFATUMUMAB
     Indication: Product used for unknown indication
     Dosage: UNK
     Route: 065

REACTIONS (6)
  - Limb discomfort [Unknown]
  - Fatigue [Unknown]
  - Asthenia [Unknown]
  - Injection site pain [Unknown]
  - Injection site muscle weakness [Unknown]
  - Inappropriate schedule of product administration [Unknown]
